FAERS Safety Report 4306035-1 (Version None)
Quarter: 2004Q1

REPORT INFORMATION
  Report Type: 
  Country: None (occurrence: None)
  Receive Date: 20040225
  Receipt Date: 20030121
  Transmission Date: 20041129
  Serious: No
  Sender: FDA-Public Use
  Company Number: US-BRISTOL-MYERS SQUIBB COMPANY-12163390

PATIENT
  Age: 46 Year
  Sex: Male
  Weight: 63 kg

DRUGS (2)
  1. EXCEDRIN ES TABS [Suspect]
     Dosage: DAY 1: 4 EXCEDRIN QUICKTABS, 2 EXCEDRIN ES DAY 2: 4 EXCEDRIN ES,2 QUICKTABS DAY 3 ONE EACH
     Route: 048
  2. EXCEDRIN (MIGRAINE) [Suspect]
     Indication: PAIN
     Dosage: DAY 1: 4 EXCEDRIN QUICKTABS, 2 EXCEDRIN ES DAY 2: 4 EXCEDRIN ES,2 QUICKTABS DAY 3 ONE EACH
     Route: 048
     Dates: start: 20030119, end: 20030121

REACTIONS (2)
  - MEDICATION ERROR [None]
  - NAUSEA [None]
